FAERS Safety Report 9124223 (Version 1)
Quarter: 2013Q1

REPORT INFORMATION
  Report Type: Report from Study
  Country: CN (occurrence: CN)
  Receive Date: 20130116
  Receipt Date: 20130116
  Transmission Date: 20140127
  Serious: Yes (Other)
  Sender: FDA-Public Use
  Company Number: CN-ROCHE-1179795

PATIENT
  Sex: 0

DRUGS (7)
  1. MYCOPHENOLATE MOFETIL [Suspect]
     Indication: PROPHYLAXIS AGAINST TRANSPLANT REJECTION
     Dosage: 1-1.5 G/D
     Route: 065
  2. MYCOPHENOLATE MOFETIL [Suspect]
     Indication: PREMEDICATION
     Dosage: PREMEDICANT, 1.
     Route: 065
  3. CYCLOSPORINE [Suspect]
     Indication: PROPHYLAXIS AGAINST TRANSPLANT REJECTION
     Route: 065
  4. TACROLIMUS [Suspect]
     Indication: PROPHYLAXIS AGAINST TRANSPLANT REJECTION
     Route: 065
  5. METHYLPREDNISOLONE [Suspect]
     Indication: PROPHYLAXIS AGAINST TRANSPLANT REJECTION
     Route: 042
  6. METHYLPREDNISOLONE [Suspect]
     Dosage: THE DOSE WAS THEN DECREASED TO 360 MG, 180 MG, 80 MG AND 40 MG EACH SUBSEQUENT DAY
     Route: 065
  7. PREDNISONE [Suspect]
     Indication: PROPHYLAXIS AGAINST TRANSPLANT REJECTION
     Dosage: 15-20 MG/D AS A MAINTENANCE THERAPY
     Route: 065

REACTIONS (1)
  - Drug-induced liver injury [Unknown]
